FAERS Safety Report 25527117 (Version 1)
Quarter: 2025Q3

REPORT INFORMATION
  Report Type: Spontaneous
  Country: GB (occurrence: GB)
  Receive Date: 20250708
  Receipt Date: 20250708
  Transmission Date: 20251021
  Serious: Yes (Other)
  Sender: INDOCO REMEDIES LIMITED
  Company Number: None

PATIENT

DRUGS (2)
  1. ALLOPURINOL [Suspect]
     Active Substance: ALLOPURINOL
     Indication: Product used for unknown indication
     Route: 065
  2. EDOXABAN [Suspect]
     Active Substance: EDOXABAN
     Indication: Product used for unknown indication
     Route: 065

REACTIONS (3)
  - Haemorrhage [Recovered/Resolved]
  - SJS-TEN overlap [Recovered/Resolved]
  - Adverse drug reaction [Recovered/Resolved]
